FAERS Safety Report 18516783 (Version 1)
Quarter: 2020Q4

REPORT INFORMATION
  Report Type: Spontaneous
  Country: US (occurrence: US)
  Receive Date: 20201118
  Receipt Date: 20201118
  Transmission Date: 20210114
  Serious: Yes (Hospitalization)
  Sender: FDA-Public Use
  Company Number: US-PERRIGO-20US016232

PATIENT
  Sex: Female

DRUGS (1)
  1. ALLERGY [Suspect]
     Active Substance: UNSPECIFIED INGREDIENT
     Indication: SUICIDE ATTEMPT
     Dosage: UNKNOWN, SINGLE
     Route: 048
     Dates: start: 20201012, end: 20201012

REACTIONS (3)
  - Dyspnoea [Unknown]
  - Thirst [Unknown]
  - Overdose [Unknown]

NARRATIVE: CASE EVENT DATE: 20201012
